FAERS Safety Report 11250238 (Version 1)
Quarter: 2015Q3

REPORT INFORMATION
  Report Type: Spontaneous
  Country: US (occurrence: US)
  Receive Date: 20150708
  Receipt Date: 20150708
  Transmission Date: 20151125
  Serious: No
  Sender: FDA-Public Use
  Company Number: US-ELI_LILLY_AND_COMPANY-US200910007233

PATIENT
  Age: 23 Year
  Sex: Female

DRUGS (4)
  1. SYMBYAX [Suspect]
     Active Substance: FLUOXETINE HYDROCHLORIDE\OLANZAPINE
     Indication: DEPRESSION
     Dosage: 1 D/F, UNK
  2. ALESSE 28 [Concomitant]
     Active Substance: ETHINYL ESTRADIOL\LEVONORGESTREL
     Dosage: 1 D/F, UNK
  3. SYNTHROID [Concomitant]
     Active Substance: LEVOTHYROXINE SODIUM
     Dosage: 1 D/F, UNK
  4. PRILOSEC [Concomitant]
     Active Substance: OMEPRAZOLE MAGNESIUM
     Dosage: 1 D/F, UNK

REACTIONS (4)
  - Depression [Not Recovered/Not Resolved]
  - Hallucination [Not Recovered/Not Resolved]
  - Anger [Not Recovered/Not Resolved]
  - Drug ineffective [Unknown]
